FAERS Safety Report 6907468-7 (Version None)
Quarter: 2010Q3

REPORT INFORMATION
  Report Type: 
  Country: None (occurrence: None)
  Receive Date: 20100805
  Receipt Date: 20100728
  Transmission Date: 20110219
  Serious: No
  Sender: FDA-Public Use
  Company Number: US-BIOGENIDEC-2010BI007566

PATIENT
  Sex: Male

DRUGS (5)
  1. TYSABRI [Suspect]
     Indication: MULTIPLE SCLEROSIS
     Route: 042
     Dates: start: 20100105
  2. AVONEX [Concomitant]
     Indication: MULTIPLE SCLEROSIS
     Route: 030
     Dates: start: 19990101
  3. PROVIGIL [Concomitant]
     Indication: ASTHENIA
  4. COPAXONE [Concomitant]
     Indication: MULTIPLE SCLEROSIS
  5. REBIF [Concomitant]
     Indication: MULTIPLE SCLEROSIS

REACTIONS (10)
  - COGNITIVE DISORDER [None]
  - CONFUSIONAL STATE [None]
  - DISTURBANCE IN ATTENTION [None]
  - DRUG EFFECT DECREASED [None]
  - GAIT DISTURBANCE [None]
  - INCOHERENT [None]
  - MOBILITY DECREASED [None]
  - PRURITUS [None]
  - PYREXIA [None]
  - RASH [None]
